FAERS Safety Report 9779002 (Version 1)
Quarter: 2013Q4

REPORT INFORMATION
  Report Type: Spontaneous
  Country: DK (occurrence: DK)
  Receive Date: 20131223
  Receipt Date: 20131223
  Transmission Date: 20140711
  Serious: Yes (Other)
  Sender: FDA-Public Use
  Company Number: DK-BRISTOL-MYERS SQUIBB COMPANY-19909365

PATIENT
  Age: 55 Year
  Sex: Female

DRUGS (1)
  1. ORENCIA FOR INJ 250 MG/VIAL [Suspect]
     Dosage: OCT 2008-JULY 2013,TOTAL OF 50 ORENCIA INFUSIONS SINCE 2008
     Route: 042
     Dates: start: 20081002, end: 201307

REACTIONS (1)
  - Sarcoidosis [Unknown]
